FAERS Safety Report 6573508-0 (Version None)
Quarter: 2010Q1

REPORT INFORMATION
  Report Type: 
  Country: None (occurrence: None)
  Receive Date: 20100208
  Receipt Date: 20100128
  Transmission Date: 20100710
  Serious: Yes (Other)
  Sender: FDA-Public Use
  Company Number: FR-AMGEN-QUU380273

PATIENT
  Sex: Male

DRUGS (6)
  1. NEULASTA [Suspect]
     Indication: CHEMOTHERAPY
     Route: 058
     Dates: start: 20081124, end: 20090429
  2. CISPLATIN [Concomitant]
  3. TAXOTERE [Concomitant]
     Route: 042
     Dates: start: 20081124, end: 20090429
  4. AVASTIN [Concomitant]
     Route: 042
     Dates: start: 20081124, end: 20090429
  5. TARCEVA [Concomitant]
     Route: 048
     Dates: start: 20090528
  6. ODRIK [Concomitant]
     Route: 048

REACTIONS (1)
  - EJECTION FRACTION DECREASED [None]
